FAERS Safety Report 15428505 (Version 8)
Quarter: 2019Q1

REPORT INFORMATION
  Report Type: Report from Study
  Country: US (occurrence: US)
  Receive Date: 20180926
  Receipt Date: 20190206
  Transmission Date: 20190417
  Serious: Yes (Hospitalization, Other)
  Sender: FDA-Public Use
  Company Number: US-ROCHE-2187614

PATIENT
  Sex: Female

DRUGS (2)
  1. OCREVUS [Suspect]
     Active Substance: OCRELIZUMAB
     Route: 042
     Dates: start: 20180302
  2. OCREVUS [Suspect]
     Active Substance: OCRELIZUMAB
     Indication: RELAPSING MULTIPLE SCLEROSIS
     Route: 042
     Dates: start: 20170904, end: 20180303

REACTIONS (11)
  - Fatigue [Unknown]
  - Urinary incontinence [Unknown]
  - Immunodeficiency [Unknown]
  - Pneumonia [Unknown]
  - Urinary tract infection [Unknown]
  - Pulmonary congestion [Unknown]
  - Fall [Unknown]
  - Electrocardiogram abnormal [Unknown]
  - Drug hypersensitivity [Recovered/Resolved]
  - Eye movement disorder [Recovered/Resolved]
  - Pulmonary thrombosis [Unknown]
